FAERS Safety Report 4733604-7 (Version None)
Quarter: 2005Q3

REPORT INFORMATION
  Report Type: 
  Country: None (occurrence: None)
  Receive Date: 20050729
  Receipt Date: 20050725
  Transmission Date: 20060218
  Serious: Yes (Other)
  Sender: FDA-Public Use
  Company Number: 2003018154

PATIENT
  Age: 21 Year
  Sex: Female

DRUGS (1)
  1. DOXYCYCLINE [Suspect]
     Indication: MALARIA PROPHYLAXIS
     Dosage: 100 MG (DAILY), ORAL
     Route: 048

REACTIONS (3)
  - EYE HAEMORRHAGE [None]
  - INTRACRANIAL PRESSURE INCREASED [None]
  - RETINAL EXUDATES [None]
